FAERS Safety Report 7744403-6 (Version None)
Quarter: 2011Q3

REPORT INFORMATION
  Report Type: 
  Country: None (occurrence: None)
  Receive Date: 20110912
  Receipt Date: 20110907
  Transmission Date: 20111222
  Serious: Yes (Death)
  Sender: FDA-Public Use
  Company Number: EG-PFIZER INC-2011209320

PATIENT
  Age: 1 Year
  Sex: Male

DRUGS (1)
  1. CEFOBID [Suspect]
     Indication: TRACHEOSTOMY
     Dosage: 250 MG, SINGLE
     Route: 042
     Dates: start: 20110905, end: 20110905

REACTIONS (1)
  - HYPERSENSITIVITY [None]
